FAERS Safety Report 14265356 (Version 1)
Quarter: 2017Q4

REPORT INFORMATION
  Report Type: Spontaneous
  Country: GB (occurrence: GB)
  Receive Date: 20171208
  Receipt Date: 20171208
  Transmission Date: 20180321
  Serious: Yes (Hospitalization)
  Sender: FDA-Public Use
  Company Number: GB-PFIZER INC-2017519919

PATIENT
  Age: 47 Year
  Sex: Female
  Weight: 79.3 kg

DRUGS (19)
  1. DALTEPARIN [Concomitant]
     Active Substance: DALTEPARIN
  2. VANCOMYCIN HCL [Suspect]
     Active Substance: VANCOMYCIN HYDROCHLORIDE
     Indication: STAPHYLOCOCCAL BACTERAEMIA
     Dosage: 3 G, 1X/DAY
     Route: 042
     Dates: start: 20171106, end: 20171110
  3. GENTAMICIN. [Concomitant]
     Active Substance: GENTAMICIN
  4. PARACETAMOL [Concomitant]
     Active Substance: ACETAMINOPHEN
  5. PREGABALIN. [Concomitant]
     Active Substance: PREGABALIN
  6. ZOPICLONE [Concomitant]
     Active Substance: ZOPICLONE
  7. DIHYDROCODEINE [Concomitant]
     Active Substance: DIHYDROCODEINE
  8. MORPHINE SULFATE. [Concomitant]
     Active Substance: MORPHINE SULFATE
  9. CASSIA SENNA [Concomitant]
  10. HUMULIN M3 [Concomitant]
     Active Substance: INSULIN HUMAN
  11. MIRTAZAPINE. [Concomitant]
     Active Substance: MIRTAZAPINE
  12. LITHIUM. [Concomitant]
     Active Substance: LITHIUM
  13. METRONIDAZOLE. [Concomitant]
     Active Substance: METRONIDAZOLE
  14. LACTULOSE. [Concomitant]
     Active Substance: LACTULOSE
  15. CYCLIZINE [Concomitant]
     Active Substance: CYCLIZINE
  16. SIMVASTATIN. [Concomitant]
     Active Substance: SIMVASTATIN
  17. QUETIAPINE. [Concomitant]
     Active Substance: QUETIAPINE
  18. AZTREONAM. [Concomitant]
     Active Substance: AZTREONAM
  19. COTRIMOXAZOLE [Concomitant]
     Active Substance: SULFAMETHOXAZOLE\TRIMETHOPRIM

REACTIONS (2)
  - Oedema [Recovering/Resolving]
  - Blister [Recovering/Resolving]

NARRATIVE: CASE EVENT DATE: 20171110
